FAERS Safety Report 6203397-5 (Version None)
Quarter: 2009Q2

REPORT INFORMATION
  Report Type: 
  Country: None (occurrence: None)
  Receive Date: 20090521
  Receipt Date: 20090505
  Transmission Date: 20091009
  Serious: Yes (Hospitalization)
  Sender: FDA-Public Use
  Company Number: 2009S1007850

PATIENT
  Age: 35 Year
  Sex: Female

DRUGS (9)
  1. COCAINE (COCAINE) [Suspect]
     Indication: SEPTOPLASTY
     Dosage: 250 MG; ONCE; NASAL
     Route: 045
  2. OCTOCAINE HYDROCHLORIDE 2% W/ EPINEPHRINE 1:50000 INJ [Suspect]
     Indication: SURGERY
     Dosage: ; ONCE; NASAL
     Route: 045
  3. AMIODARONE HCL [Suspect]
     Dosage: 300 MG; ONCE;
  4. FENTANYL [Concomitant]
  5. PROPOFOL [Concomitant]
  6. NITROUS OXIDE [Concomitant]
  7. SEVOFLURANE [Concomitant]
  8. ONDANSETRON [Concomitant]
  9. DICLOFENAC SODIUM [Concomitant]

REACTIONS (7)
  - APNOEA [None]
  - CARDIAC ARREST [None]
  - ELECTROLYTE IMBALANCE [None]
  - HYPOTENSION [None]
  - LONG QT SYNDROME [None]
  - VENTRICULAR FIBRILLATION [None]
  - VENTRICULAR TACHYCARDIA [None]
